FAERS Safety Report 7104845-9 (Version None)
Quarter: 2010Q4

REPORT INFORMATION
  Report Type: 
  Country: None (occurrence: None)
  Receive Date: 20101109
  Receipt Date: 20101025
  Transmission Date: 20110411
  Serious: Yes (Hospitalization, Other)
  Sender: FDA-Public Use
  Company Number: 021089

PATIENT
  Sex: Male
  Weight: 75 kg

DRUGS (2)
  1. KEPPRA [Suspect]
     Indication: CONVULSION
     Dosage: (500 MG BID ORAL)
     Route: 048
     Dates: start: 20100812
  2. DILANTIN [Suspect]

REACTIONS (7)
  - CONVULSION [None]
  - DRUG HYPERSENSITIVITY [None]
  - MEMORY IMPAIRMENT [None]
  - MIGRAINE [None]
  - PSYCHOTIC DISORDER [None]
  - SUICIDAL IDEATION [None]
  - VISUAL IMPAIRMENT [None]
